APPROVED DRUG PRODUCT: MINOCYCLINE HYDROCHLORIDE
Active Ingredient: MINOCYCLINE HYDROCHLORIDE
Strength: EQ 75MG BASE
Dosage Form/Route: CAPSULE;ORAL
Application: A065062 | Product #002 | TE Code: AB
Applicant: TORRENT PHARMACEUTICALS LTD
Approved: Nov 30, 2000 | RLD: No | RS: No | Type: RX